FAERS Safety Report 5563200-3 (Version None)
Quarter: 2007Q4

REPORT INFORMATION
  Report Type: 
  Country: None (occurrence: None)
  Receive Date: 20071211
  Receipt Date: 20071211
  Transmission Date: 20080405
  Serious: Yes (Other)
  Sender: FDA-Public Use
  Company Number: None

PATIENT
  Age: 29 Year
  Sex: Female
  Weight: 65.7716 kg

DRUGS (1)
  1. CHANTIX [Suspect]
     Indication: SMOKING CESSATION THERAPY
     Dosage: .5-1 MG  TWICE DAILY  PO
     Route: 048
     Dates: start: 20071115, end: 20071206

REACTIONS (9)
  - AGGRESSION [None]
  - AMNESIA [None]
  - ANGER [None]
  - CRYING [None]
  - DEPRESSION [None]
  - FEELINGS OF WORTHLESSNESS [None]
  - MENTAL DISORDER [None]
  - PERFORMANCE STATUS DECREASED [None]
  - VERTIGO [None]
